FAERS Safety Report 8065134-1 (Version None)
Quarter: 2012Q1

REPORT INFORMATION
  Report Type: 
  Country: None (occurrence: None)
  Receive Date: 20120117
  Receipt Date: 20120109
  Transmission Date: 20120608
  Serious: Yes (Other)
  Sender: FDA-Public Use
  Company Number: TPA2012A00201

PATIENT
  Age: 47 Year
  Sex: Male
  Weight: 129.7287 kg

DRUGS (12)
  1. DIGOXIN [Concomitant]
  2. DEXILANT [Concomitant]
  3. PLAVIX [Concomitant]
  4. PRAVASTATIN [Concomitant]
  5. CELEBREX [Concomitant]
  6. LASIX [Concomitant]
  7. ASPIRIN [Concomitant]
  8. ACTOPLUS MET [Suspect]
     Indication: TYPE 2 DIABETES MELLITUS
     Dosage: 2 IN 1 D, 15/850, PER ORAL 1 IN 1 D, 15/850, PER ORAL
     Route: 048
     Dates: start: 20090109, end: 20110709
  9. ACTOPLUS MET [Suspect]
     Indication: TYPE 2 DIABETES MELLITUS
     Dosage: 2 IN 1 D, 15/850, PER ORAL 1 IN 1 D, 15/850, PER ORAL
     Route: 048
     Dates: start: 20110709
  10. POTASSIUM CHLORIDE [Concomitant]
  11. COREG [Concomitant]
  12. AMBIEN [Concomitant]

REACTIONS (7)
  - MANTLE CELL LYMPHOMA STAGE IV [None]
  - ULCER [None]
  - RIB FRACTURE [None]
  - BLOOD PRESSURE DECREASED [None]
  - BODY HEIGHT DECREASED [None]
  - LOSS OF CONSCIOUSNESS [None]
  - WEIGHT DECREASED [None]
